FAERS Safety Report 4984425-1 (Version None)
Quarter: 2006Q2

REPORT INFORMATION
  Report Type: 
  Country: None (occurrence: None)
  Receive Date: 20060427
  Receipt Date: 20051013
  Transmission Date: 20061013
  Serious: Yes (Other)
  Sender: FDA-Public Use
  Company Number: US-GLAXOSMITHKLINE-A0578145A

PATIENT
  Sex: Male

DRUGS (3)
  1. PAXIL [Suspect]
     Indication: DEPRESSION
     Dosage: 40MG PER DAY
     Route: 048
  2. DOXAZOSIN [Concomitant]
  3. HYDROCHLOROTHIAZIDE [Concomitant]

REACTIONS (7)
  - ARTHROPATHY [None]
  - BLOOD GLUCOSE INCREASED [None]
  - BLUNTED AFFECT [None]
  - DIABETES MELLITUS NON-INSULIN-DEPENDENT [None]
  - DRUG WITHDRAWAL SYNDROME [None]
  - METABOLIC SYNDROME [None]
  - WEIGHT INCREASED [None]
